FAERS Safety Report 21156832 (Version 4)
Quarter: 2022Q4

REPORT INFORMATION
  Report Type: Other
  Country: JP (occurrence: JP)
  Receive Date: 20220801
  Receipt Date: 20221031
  Transmission Date: 20230112
  Serious: Yes (Death, Hospitalization)
  Sender: FDA-Public Use
  Company Number: JP-CHUGAI-2021015378

PATIENT
  Age: 60 Year
  Sex: Male
  Weight: 61.4 kg

DRUGS (20)
  1. ATEZOLIZUMAB [Suspect]
     Active Substance: ATEZOLIZUMAB
     Indication: Lung adenocarcinoma
     Route: 041
     Dates: start: 20210318, end: 20210318
  2. ATEZOLIZUMAB [Suspect]
     Active Substance: ATEZOLIZUMAB
     Route: 041
     Dates: start: 2021, end: 2021
  3. ATEZOLIZUMAB [Suspect]
     Active Substance: ATEZOLIZUMAB
     Route: 041
     Dates: start: 20210706, end: 20210727
  4. ATEZOLIZUMAB [Suspect]
     Active Substance: ATEZOLIZUMAB
     Route: 041
     Dates: start: 20210824
  5. ATEZOLIZUMAB [Suspect]
     Active Substance: ATEZOLIZUMAB
     Route: 041
     Dates: start: 20211130
  6. ATEZOLIZUMAB [Suspect]
     Active Substance: ATEZOLIZUMAB
     Route: 041
     Dates: start: 20220118
  7. ATEZOLIZUMAB [Suspect]
     Active Substance: ATEZOLIZUMAB
     Route: 041
     Dates: start: 20220308, end: 20220331
  8. ATEZOLIZUMAB [Suspect]
     Active Substance: ATEZOLIZUMAB
     Route: 041
     Dates: end: 20220512
  9. BEVACIZUMAB [Suspect]
     Active Substance: BEVACIZUMAB
     Indication: Lung adenocarcinoma
     Dosage: 945 MILLIGRAM, SINGLE
     Route: 041
     Dates: start: 20210318, end: 20210318
  10. BEVACIZUMAB [Suspect]
     Active Substance: BEVACIZUMAB
     Dosage: 945 MILLIGRAM
     Route: 041
     Dates: start: 2021, end: 20210615
  11. BEVACIZUMAB [Suspect]
     Active Substance: BEVACIZUMAB
     Dosage: 945 MILLIGRAM
     Route: 041
     Dates: start: 20210706, end: 20210727
  12. BEVACIZUMAB [Suspect]
     Active Substance: BEVACIZUMAB
     Route: 041
     Dates: start: 20210824
  13. BEVACIZUMAB [Suspect]
     Active Substance: BEVACIZUMAB
     Route: 041
     Dates: start: 20211130
  14. BEVACIZUMAB [Suspect]
     Active Substance: BEVACIZUMAB
     Route: 041
     Dates: start: 20220118
  15. BEVACIZUMAB [Suspect]
     Active Substance: BEVACIZUMAB
     Route: 041
     Dates: start: 20220308, end: 20220331
  16. BEVACIZUMAB [Suspect]
     Active Substance: BEVACIZUMAB
     Route: 041
     Dates: end: 20220512
  17. CARBOPLATIN [Suspect]
     Active Substance: CARBOPLATIN
     Indication: Lung adenocarcinoma
     Dosage: 550 MILLIGRAM, SINGLE
     Route: 041
     Dates: start: 20210318, end: 20210318
  18. CARBOPLATIN [Suspect]
     Active Substance: CARBOPLATIN
     Dosage: 550 MILLIGRAM
     Route: 041
     Dates: start: 2021, end: 20210615
  19. PACLITAXEL [Concomitant]
     Active Substance: PACLITAXEL
     Indication: Lung adenocarcinoma
     Route: 041
     Dates: start: 20210318, end: 20210318
  20. PACLITAXEL [Concomitant]
     Active Substance: PACLITAXEL
     Route: 041
     Dates: start: 2021, end: 20210615

REACTIONS (6)
  - Hypothyroidism [Recovering/Resolving]
  - Myocardial infarction [Fatal]
  - Hyponatraemia [Recovered/Resolved]
  - Hypertension [Unknown]
  - Proteinuria [Recovering/Resolving]
  - Pyrexia [Recovered/Resolved]

NARRATIVE: CASE EVENT DATE: 20210326
